FAERS Safety Report 19926674 (Version 1)
Quarter: 2021Q4

REPORT INFORMATION
  Report Type: Spontaneous
  Country: US (occurrence: US)
  Receive Date: 20211006
  Receipt Date: 20211006
  Transmission Date: 20220303
  Serious: No
  Sender: FDA-Public Use
  Company Number: 2021A754788

PATIENT
  Sex: Male
  Weight: 172 kg

DRUGS (1)
  1. FASENRA [Suspect]
     Active Substance: BENRALIZUMAB
     Indication: Asthma
     Route: 058
     Dates: start: 20190524

REACTIONS (3)
  - Pruritus [Unknown]
  - Oedema peripheral [Unknown]
  - Pigmentation disorder [Unknown]
